FAERS Safety Report 4295403-2 (Version None)
Quarter: 2004Q1

REPORT INFORMATION
  Report Type: 
  Country: None (occurrence: None)
  Receive Date: 20040216
  Receipt Date: 20030716
  Transmission Date: 20041129
  Serious: No
  Sender: FDA-Public Use
  Company Number: US-GLAXOSMITHKLINE-A0417862A

PATIENT
  Age: 6 Year
  Sex: Male

DRUGS (3)
  1. LAMICTAL [Suspect]
     Route: 048
     Dates: start: 20030601
  2. PAXIL [Concomitant]
     Indication: ANXIETY
     Dosage: 10MG PER DAY
     Route: 048
  3. TENEX [Concomitant]
     Indication: ATTENTION DEFICIT/HYPERACTIVITY DISORDER
     Dosage: .5MG TWICE PER DAY
     Route: 065

REACTIONS (2)
  - ADVERSE EVENT [None]
  - TIC [None]
